FAERS Safety Report 21911274 (Version 2)
Quarter: 2023Q1

REPORT INFORMATION
  Report Type: Spontaneous
  Country: US (occurrence: US)
  Receive Date: 20230125
  Receipt Date: 20230228
  Transmission Date: 20230418
  Serious: Yes (Hospitalization, Other)
  Sender: FDA-Public Use
  Company Number: US-BEH-2023154514

PATIENT
  Age: 26 Year
  Sex: Male
  Weight: 98 kg

DRUGS (16)
  1. HUMAN IMMUNOGLOBULIN G [Suspect]
     Active Substance: HUMAN IMMUNOGLOBULIN G
     Indication: Kidney transplant rejection
     Dosage: UNK
     Route: 042
     Dates: start: 20210825
  2. HUMAN IMMUNOGLOBULIN G [Suspect]
     Active Substance: HUMAN IMMUNOGLOBULIN G
     Dosage: UNK
     Route: 042
     Dates: start: 20210827
  3. CLAZAKIZUMAB [Concomitant]
     Active Substance: CLAZAKIZUMAB
     Dosage: 25 MILLIGRAM  EVERY 8 WEEKS
     Route: 058
     Dates: start: 20200131
  4. CLAZAKIZUMAB [Concomitant]
     Active Substance: CLAZAKIZUMAB
     Dosage: 25 UNK
     Route: 065
     Dates: start: 20210816
  5. CLAZAKIZUMAB [Concomitant]
     Active Substance: CLAZAKIZUMAB
     Dosage: UNK
     Route: 065
     Dates: start: 20210913
  6. TACROLIMUS [Concomitant]
     Active Substance: TACROLIMUS
     Indication: Immunosuppression
     Dosage: 1 MILLIGRAM
     Route: 065
     Dates: start: 20110601
  7. ALBUTEROL SULFATE [Concomitant]
     Active Substance: ALBUTEROL SULFATE
     Indication: Asthma
     Dosage: 90 MICROGRAM
     Route: 065
     Dates: start: 20200601
  8. CELLCEPT [Concomitant]
     Active Substance: MYCOPHENOLATE MOFETIL
     Indication: Immunosuppression
     Dosage: 360 MILLIGRAM
     Route: 065
     Dates: start: 20200720
  9. PANTOPRAZOLE SODIUM [Concomitant]
     Active Substance: PANTOPRAZOLE SODIUM
     Indication: Prophylaxis
     Dosage: 40 MILLIGRAM
     Route: 065
     Dates: start: 20200711
  10. AMLODIPINE [Concomitant]
     Active Substance: AMLODIPINE BESYLATE
     Indication: Hypertension
     Dosage: 10 MILLIGRAM
     Route: 065
     Dates: start: 20160901
  11. MONTELUKAST [Concomitant]
     Active Substance: MONTELUKAST SODIUM
     Indication: Asthma
     Dosage: 10 MILLIGRAM
     Route: 065
     Dates: start: 20000101
  12. SERTRALINE [Concomitant]
     Active Substance: SERTRALINE HYDROCHLORIDE
     Indication: Anxiety
     Dosage: 100 MILLIGRAM
     Route: 065
     Dates: start: 20160901
  13. TYLENOL [Concomitant]
     Active Substance: ACETAMINOPHEN
     Indication: Asthma
     Dosage: 250 MILLIGRAM
     Route: 065
     Dates: start: 20070505, end: 20070505
  14. DOCUSATE SOD [Concomitant]
     Indication: Constipation
     Dosage: 100 MILLIGRAM
     Route: 065
     Dates: start: 20200711
  15. PREDNISONE [Concomitant]
     Active Substance: PREDNISONE
     Indication: Immunosuppression
     Dosage: 5 MILLIGRAM
     Route: 065
  16. SODIUM BICARBONATE [Concomitant]
     Active Substance: SODIUM BICARBONATE
     Indication: Electrolyte substitution therapy
     Dosage: 650 MILLIGRAM
     Route: 065

REACTIONS (16)
  - Hypoxia [Recovered/Resolved]
  - Chest pain [Recovered/Resolved]
  - No adverse event [Unknown]
  - Off label use [Unknown]
  - Headache [Recovered/Resolved]
  - Chest pain [Recovered/Resolved]
  - Pruritus [Unknown]
  - Headache [Unknown]
  - Chest discomfort [Unknown]
  - Hypertension [Unknown]
  - Tachycardia [Unknown]
  - Tachypnoea [Unknown]
  - Aspartate aminotransferase increased [Unknown]
  - Alanine aminotransferase increased [Unknown]
  - Brain natriuretic peptide increased [Unknown]
  - Lymphopenia [Unknown]

NARRATIVE: CASE EVENT DATE: 20210825
